FAERS Safety Report 9107268 (Version 1)
Quarter: 2013Q1

REPORT INFORMATION
  Report Type: Spontaneous
  Country: US (occurrence: US)
  Receive Date: 20130221
  Receipt Date: 20130221
  Transmission Date: 20140127
  Serious: Yes (Other)
  Sender: FDA-Public Use
  Company Number: US-JNJFOC-20130207229

PATIENT
  Age: 80 None
  Sex: Male
  Weight: 84.4 kg

DRUGS (6)
  1. KETOCONAZOLE [Suspect]
     Indication: PRODUCT USED FOR UNKNOWN INDICATION
     Route: 048
  2. SIPULEUCEL-T [Suspect]
     Indication: PROSTATE CANCER
     Route: 042
     Dates: start: 20120628, end: 20120628
  3. SIPULEUCEL-T [Suspect]
     Indication: PROSTATE CANCER
     Route: 042
     Dates: start: 20120604, end: 20120604
  4. PREDNISONE [Concomitant]
     Route: 065
  5. DEGARELIX [Concomitant]
     Route: 065
  6. LUPRON [Concomitant]
     Route: 065

REACTIONS (5)
  - Shock [Recovered/Resolved]
  - Loss of consciousness [Recovered/Resolved]
  - Liver function test abnormal [Unknown]
  - Dysgeusia [Recovering/Resolving]
  - Fatigue [Unknown]
